FAERS Safety Report 18298038 (Version 2)
Quarter: 2020Q4

REPORT INFORMATION
  Report Type: Report from Study
  Country: US (occurrence: US)
  Receive Date: 20200922
  Receipt Date: 20201002
  Transmission Date: 20210113
  Serious: Yes (Other)
  Sender: FDA-Public Use
  Company Number: US-MALLINCKRODT-T202004616

PATIENT
  Sex: Female

DRUGS (3)
  1. PEPCID AC [Concomitant]
     Active Substance: FAMOTIDINE
     Indication: EPIGASTRIC DISCOMFORT
     Dosage: 0.4, UNK
     Route: 065
  2. PEPCID AC [Concomitant]
     Active Substance: FAMOTIDINE
     Dosage: 0.45 (INCREASED THE AMOUNT)
     Route: 065
     Dates: start: 2020
  3. REPOSITORY CORTICOTROPIN INJECTION [Suspect]
     Active Substance: CORTICOTROPIN
     Indication: INFANTILE SPASMS
     Dosage: 0.35 MILLILITER, BID, FOR 14 DAYS
     Route: 030

REACTIONS (1)
  - Haematochezia [Not Recovered/Not Resolved]

NARRATIVE: CASE EVENT DATE: 2020
